FAERS Safety Report 9174893 (Version 1)
Quarter: 2013Q1

REPORT INFORMATION
  Report Type: Spontaneous
  Country: DE (occurrence: DE)
  Receive Date: 20130320
  Receipt Date: 20130320
  Transmission Date: 20140127
  Serious: Yes (Hospitalization, Other)
  Sender: FDA-Public Use
  Company Number: DE-JNJFOC-20130308402

PATIENT
  Sex: Female

DRUGS (1)
  1. XARELTO [Suspect]
     Indication: PRODUCT USED FOR UNKNOWN INDICATION
     Route: 048

REACTIONS (6)
  - Cerebral haemorrhage [Unknown]
  - Circulatory collapse [Unknown]
  - Diplopia [Unknown]
  - Diplopia [Unknown]
  - Hyperhidrosis [Unknown]
  - Chills [Unknown]
